FAERS Safety Report 4628008-1 (Version None)
Quarter: 2005Q2

REPORT INFORMATION
  Report Type: 
  Country: None (occurrence: None)
  Receive Date: 20050401
  Receipt Date: 20050317
  Transmission Date: 20051028
  Serious: Yes (Death)
  Sender: FDA-Public Use
  Company Number: GXKR2005FR00803

PATIENT
  Age: 76 Year
  Sex: Male

DRUGS (7)
  1. ALLOPURINOL [Suspect]
     Dosage: 200 MG, ORAL
     Route: 048
     Dates: start: 20050210, end: 20050210
  2. THERALENE (ALIMEMAZINE TARTRATE) [Suspect]
     Dosage: ORAL
     Route: 048
     Dates: start: 20041201, end: 20050209
  3. VASTAREL (TRIMETAZIDINE HYDROCHLORIDE) [Suspect]
     Dosage: 1 DF, ORAL
     Route: 048
     Dates: end: 20050210
  4. KARDEGIC (ACETYLSALICYLATE LYSINE) [Suspect]
     Dosage: 75 MG, ORAL
     Route: 048
     Dates: end: 20050210
  5. ZYPREXA [Suspect]
     Dosage: 20 MG, DAY
     Dates: start: 20041201, end: 20050209
  6. PRAVASTATIN [Suspect]
     Dosage: 20 MG, DAY
     Dates: start: 20050210
  7. BRONCHKOKOD (CARBOCISTEINE) [Concomitant]

REACTIONS (1)
  - SUDDEN DEATH [None]
